FAERS Safety Report 10497624 (Version 2)
Quarter: 2014Q4

REPORT INFORMATION
  Report Type: Spontaneous
  Country: JP (occurrence: JP)
  Receive Date: 20141006
  Receipt Date: 20141027
  Transmission Date: 20150528
  Serious: Yes (Hospitalization)
  Sender: FDA-Public Use
  Company Number: JP-ROCHE-1469438

PATIENT
  Age: 62 Year
  Sex: Female
  Weight: 45 kg

DRUGS (31)
  1. KADCYLA [Suspect]
     Active Substance: ADO-TRASTUZUMAB EMTANSINE
     Indication: BREAST CANCER
     Route: 041
     Dates: start: 20140731, end: 20140911
  2. BAKUMONDO-TO [Suspect]
     Active Substance: HERBALS
     Indication: UPPER RESPIRATORY TRACT INFLAMMATION
     Route: 048
     Dates: start: 20131125, end: 20140827
  3. BAKUMONDO-TO [Suspect]
     Active Substance: HERBALS
     Indication: UPPER RESPIRATORY TRACT INFLAMMATION
     Route: 048
     Dates: start: 20140828, end: 20140903
  4. MYSLEE [Concomitant]
     Active Substance: ZOLPIDEM TARTRATE
     Route: 048
     Dates: start: 20140828, end: 20140903
  5. LOXOPROFEN [Concomitant]
     Active Substance: LOXOPROFEN
     Route: 048
     Dates: start: 20140807, end: 20140827
  6. LOXOPROFEN [Concomitant]
     Active Substance: LOXOPROFEN
     Route: 048
     Dates: start: 20140904, end: 20140910
  7. MOHRUS TAPE [Concomitant]
     Active Substance: KETOPROFEN
     Route: 062
     Dates: start: 20140821, end: 20140821
  8. BAKUMONDO-TO [Suspect]
     Active Substance: HERBALS
     Indication: UPPER RESPIRATORY TRACT INFLAMMATION
     Route: 048
     Dates: start: 20140828, end: 20140910
  9. MIYA-BM [Concomitant]
     Active Substance: CLOSTRIDIUM BUTYRICUM SPORES STRAIN M-55
     Route: 048
     Dates: start: 20140828, end: 20140903
  10. LOXOPROFEN [Concomitant]
     Active Substance: LOXOPROFEN
     Route: 048
     Dates: start: 20121114
  11. DEPAS [Concomitant]
     Active Substance: ETIZOLAM
     Route: 048
     Dates: start: 20140828, end: 20140903
  12. DEPAS [Concomitant]
     Active Substance: ETIZOLAM
     Route: 048
     Dates: start: 20140904, end: 20140910
  13. MIYA-BM [Concomitant]
     Active Substance: CLOSTRIDIUM BUTYRICUM SPORES STRAIN M-55
     Route: 048
     Dates: start: 20140403, end: 20140827
  14. LOXOPROFEN [Concomitant]
     Active Substance: LOXOPROFEN
     Route: 048
     Dates: start: 20140828, end: 20140903
  15. LOXONIN [Concomitant]
     Active Substance: LOXOPROFEN SODIUM
     Route: 048
     Dates: start: 20140731, end: 20140806
  16. MOHRUS TAPE [Concomitant]
     Active Substance: KETOPROFEN
     Route: 062
     Dates: start: 20140828, end: 20140828
  17. DEXALTIN [Concomitant]
     Active Substance: DEXAMETHASONE
     Route: 061
     Dates: start: 20140828, end: 20140828
  18. DEPAS [Concomitant]
     Active Substance: ETIZOLAM
     Route: 048
     Dates: start: 20100601, end: 20140827
  19. GASTER [Concomitant]
     Active Substance: FAMOTIDINE
     Route: 048
     Dates: start: 20110523, end: 20140827
  20. GASTER [Concomitant]
     Active Substance: FAMOTIDINE
     Route: 048
     Dates: start: 20140828, end: 20140903
  21. MOHRUS TAPE [Concomitant]
     Active Substance: KETOPROFEN
     Route: 062
     Dates: start: 20140731, end: 20140731
  22. DECADRON [Concomitant]
     Active Substance: DEXAMETHASONE
     Route: 048
     Dates: start: 20140724, end: 20140827
  23. MOHRUS TAPE [Concomitant]
     Active Substance: KETOPROFEN
     Route: 062
     Dates: start: 20140807, end: 20140807
  24. MYSLEE [Concomitant]
     Active Substance: ZOLPIDEM TARTRATE
     Route: 048
     Dates: start: 20140904, end: 20140910
  25. DECADRON [Concomitant]
     Active Substance: DEXAMETHASONE
     Route: 048
     Dates: start: 20140828, end: 20140903
  26. GOSHAJINKIGAN [Suspect]
     Active Substance: HERBALS
     Indication: NEUROPATHY PERIPHERAL
     Route: 048
     Dates: start: 20140918
  27. MYSLEE [Concomitant]
     Active Substance: ZOLPIDEM TARTRATE
     Route: 048
     Dates: start: 20111122, end: 20140827
  28. DECADRON [Concomitant]
     Active Substance: DEXAMETHASONE
     Route: 048
     Dates: start: 20140904, end: 20140910
  29. DEXALTIN [Concomitant]
     Active Substance: DEXAMETHASONE
     Route: 061
     Dates: start: 20140821, end: 20140821
  30. GASTER [Concomitant]
     Active Substance: FAMOTIDINE
     Route: 048
     Dates: start: 20140904, end: 20140910
  31. MIYA-BM [Concomitant]
     Active Substance: CLOSTRIDIUM BUTYRICUM SPORES STRAIN M-55
     Route: 048
     Dates: start: 20140904, end: 20140910

REACTIONS (1)
  - Interstitial lung disease [Recovering/Resolving]

NARRATIVE: CASE EVENT DATE: 20140921
